FAERS Safety Report 7580287-7 (Version None)
Quarter: 2011Q2

REPORT INFORMATION
  Report Type: 
  Country: None (occurrence: None)
  Receive Date: 20110527
  Receipt Date: 20101018
  Transmission Date: 20111010
  Serious: Yes (Hospitalization, Other)
  Sender: FDA-Public Use
  Company Number: US200811002486

PATIENT
  Age: 46 Year
  Sex: Male
  Weight: 117.9 kg

DRUGS (3)
  1. BYETTA [Suspect]
     Indication: DIABETES MELLITUS
     Dates: start: 20061001, end: 20070101
  2. GLUCOPHAGE [Concomitant]
  3. EXENATIDE UNK STRENGTH PEN, DISPOSABLE DEVICE (EXENATIDE PEN (UNKNOWN [Concomitant]

REACTIONS (4)
  - PANCREATITIS [None]
  - OFF LABEL USE [None]
  - VOMITING [None]
  - PANCREATITIS ACUTE [None]
